FAERS Safety Report 7557567-4 (Version None)
Quarter: 2011Q2

REPORT INFORMATION
  Report Type: 
  Country: None (occurrence: None)
  Receive Date: 20110610
  Receipt Date: 20110526
  Transmission Date: 20111010
  Serious: Yes (Hospitalization)
  Sender: FDA-Public Use
  Company Number: ALK-01726-2011

PATIENT
  Sex: Female

DRUGS (2)
  1. VIVITROL [Suspect]
     Indication: ALCOHOLISM
     Dosage: 380 MG 1X/MONTH INTRAMUSCULAR
     Route: 030
     Dates: start: 20101001
  2. TOPIRAMATE [Concomitant]

REACTIONS (3)
  - PSYCHOTIC DISORDER [None]
  - AGITATION [None]
  - RASH [None]
